FAERS Safety Report 24906602 (Version 1)
Quarter: 2025Q1

REPORT INFORMATION
  Report Type: Spontaneous
  Country: US (occurrence: US)
  Receive Date: 20250130
  Receipt Date: 20250130
  Transmission Date: 20250409
  Serious: Yes (Hospitalization, Other)
  Sender: AMGEN
  Company Number: US-AMGEN-USASP2025013137

PATIENT
  Age: 68 Year
  Sex: Female

DRUGS (4)
  1. PREDNISONE [Suspect]
     Active Substance: PREDNISONE
     Indication: Chronic inflammatory demyelinating polyradiculoneuropathy
     Route: 065
  2. HUMAN IMMUNOGLOBULIN G [Concomitant]
     Active Substance: HUMAN IMMUNOGLOBULIN G
     Indication: Chronic inflammatory demyelinating polyradiculoneuropathy
     Route: 040
  3. HUMAN IMMUNOGLOBULIN G [Concomitant]
     Active Substance: HUMAN IMMUNOGLOBULIN G
     Dosage: 1 GRAM PER KILOGRAM, QD
     Route: 040
  4. EFGARTIGIMOD ALFA [Concomitant]
     Active Substance: EFGARTIGIMOD ALFA
     Route: 065

REACTIONS (4)
  - Chronic inflammatory demyelinating polyradiculoneuropathy [Unknown]
  - Fall [Unknown]
  - Tibia fracture [Unknown]
  - Off label use [Unknown]
